FAERS Safety Report 6558959-2 (Version None)
Quarter: 2010Q1

REPORT INFORMATION
  Report Type: 
  Country: None (occurrence: None)
  Receive Date: 20100129
  Receipt Date: 20100118
  Transmission Date: 20100710
  Serious: Yes (Hospitalization, Other)
  Sender: FDA-Public Use
  Company Number: FR-ELI_LILLY_AND_COMPANY-FR200911000885

PATIENT
  Sex: Female
  Weight: 80 kg

DRUGS (12)
  1. BYETTA [Suspect]
     Indication: TYPE 2 DIABETES MELLITUS
     Dosage: 10 UG, 2/D
     Route: 058
     Dates: start: 20080901
  2. BYETTA [Suspect]
     Dosage: 10 UG, 2/D
     Route: 058
  3. GLUCOSE [Concomitant]
     Dosage: UNK, UNKNOWN
     Route: 065
  4. LANTUS [Concomitant]
     Indication: DIABETES MELLITUS
     Dosage: 28 IU, EACH EVENING
     Route: 058
     Dates: start: 20060101
  5. METFORMIN [Concomitant]
     Indication: DIABETES MELLITUS
     Dosage: 850 2/D
     Route: 048
     Dates: start: 20070501
  6. GLIMEPIRIDE [Concomitant]
     Indication: DIABETES MELLITUS
     Dosage: 4 MG, DAILY (1/D)
     Route: 048
     Dates: start: 20080901
  7. HALDOL [Concomitant]
     Dosage: 20 MG, DAILY (1/D)
     Route: 048
  8. LEPTICUR [Concomitant]
     Route: 048
  9. ANAFRANIL [Concomitant]
     Dosage: 75 MG, DAILY (1/D)
     Route: 048
     Dates: start: 20080101
  10. EQUANIL [Concomitant]
     Dosage: 400 MG, 3/D
     Route: 048
  11. THERALENE [Concomitant]
     Dosage: 70 MG, DAILY (1/D)
     Route: 048
  12. NOZINAN [Concomitant]
     Dosage: 10 MG, DAILY (1/D)
     Route: 048

REACTIONS (6)
  - HYPOGLYCAEMIA [None]
  - NAUSEA [None]
  - OFF LABEL USE [None]
  - OVERDOSE [None]
  - SUICIDE ATTEMPT [None]
  - VOMITING [None]
